FAERS Safety Report 9868742 (Version 1)
Quarter: 2014Q1

REPORT INFORMATION
  Report Type: Report from Study
  Country: US (occurrence: US)
  Receive Date: 20140204
  Receipt Date: 20140204
  Transmission Date: 20141002
  Serious: Yes (Other)
  Sender: FDA-Public Use
  Company Number: US-ABBVIE-14P-163-1194315-00

PATIENT
  Sex: Female

DRUGS (3)
  1. HUMIRA [Suspect]
     Indication: PSORIASIS
  2. TACLONEX [Concomitant]
     Indication: PSORIASIS
     Route: 061
  3. LEXAPRO [Concomitant]
     Indication: PRODUCT USED FOR UNKNOWN INDICATION

REACTIONS (4)
  - Polycystic ovaries [Not Recovered/Not Resolved]
  - Psoriasis [Unknown]
  - Drug dose omission [Unknown]
  - Psoriasis [Unknown]
